FAERS Safety Report 19714717 (Version 1)
Quarter: 2021Q3

REPORT INFORMATION
  Report Type: Spontaneous
  Country: CN (occurrence: CN)
  Receive Date: 20210818
  Receipt Date: 20210818
  Transmission Date: 20211014
  Serious: Yes (Hospitalization)
  Sender: FDA-Public Use
  Company Number: CN-TOPROL-2021000171

PATIENT
  Age: 55 Year
  Sex: Female
  Weight: 58 kg

DRUGS (5)
  1. PANTOPRAZOLE SODIUM. [Suspect]
     Active Substance: PANTOPRAZOLE SODIUM
     Route: 048
     Dates: start: 20210710, end: 20210714
  2. CLOPIDOGREL HYDROGEN SULFATE [Suspect]
     Active Substance: CLOPIDOGREL BISULFATE
     Route: 048
     Dates: start: 20210710, end: 20210714
  3. ASPIRIN. [Concomitant]
     Active Substance: ASPIRIN
     Route: 048
     Dates: start: 20210710, end: 20210720
  4. METOPROLOL SUCCINATE. [Suspect]
     Active Substance: METOPROLOL SUCCINATE
     Route: 048
     Dates: start: 20210713, end: 20210715
  5. ILAPRAZOLE ENTERIC?COATED [Suspect]
     Active Substance: ILAPRAZOLE
     Route: 048
     Dates: start: 20210715, end: 20210716

REACTIONS (4)
  - Product use in unapproved indication [Unknown]
  - Drug eruption [Unknown]
  - Pruritus [Recovering/Resolving]
  - Rash [Recovering/Resolving]

NARRATIVE: CASE EVENT DATE: 20210713
